FAERS Safety Report 18761184 (Version 4)
Quarter: 2021Q1

REPORT INFORMATION
  Report Type: Spontaneous
  Country: CA (occurrence: CA)
  Receive Date: 20210120
  Receipt Date: 20210317
  Transmission Date: 20210419
  Serious: Yes (Hospitalization)
  Sender: FDA-Public Use
  Company Number: CA-CELLTRION INC.-2019CA020514

PATIENT

DRUGS (12)
  1. INFLECTRA [Suspect]
     Active Substance: INFLIXIMAB-DYYB
     Dosage: 5 MG/KG Q (EVERY) 0, 2, 6 WEEKS , THEN EVERY 8 WEEKS
     Route: 042
     Dates: start: 20190405, end: 20190405
  2. INFLECTRA [Suspect]
     Active Substance: INFLIXIMAB-DYYB
     Dosage: 5 MG/KG Q (EVERY) 0, 2, 6 WEEKS , THEN EVERY 8 WEEKS
     Route: 042
     Dates: start: 20200122
  3. AZATHIOPRINE. [Concomitant]
     Active Substance: AZATHIOPRINE
     Dosage: UNK
     Route: 065
  4. INFLECTRA [Suspect]
     Active Substance: INFLIXIMAB-DYYB
     Dosage: 5 MG/KG Q (EVERY) 0, 2, 6 WEEKS , THEN EVERY 8 WEEKS
     Route: 042
     Dates: start: 20200728
  5. IMURAN [Concomitant]
     Active Substance: AZATHIOPRINE
     Dosage: UNK
     Route: 065
  6. INFLECTRA [Suspect]
     Active Substance: INFLIXIMAB-DYYB
     Dosage: 5 MG/KG Q (EVERY) 0, 2, 6 WEEKS , THEN EVERY 8 WEEKS
     Route: 042
     Dates: start: 20201118
  7. INFLECTRA [Suspect]
     Active Substance: INFLIXIMAB-DYYB
     Indication: CROHN^S DISEASE
     Dosage: 5 MG/KG Q (EVERY) 0, 2, 6 WEEKS , THEN EVERY 8 WEEKS
     Route: 042
     Dates: start: 20181206, end: 20181206
  8. INFLECTRA [Suspect]
     Active Substance: INFLIXIMAB-DYYB
     Dosage: 5 MG/KG Q (EVERY) 0, 2, 6 WEEKS , THEN EVERY 8 WEEKS
     Route: 042
     Dates: start: 20181220, end: 20181220
  9. INFLECTRA [Suspect]
     Active Substance: INFLIXIMAB-DYYB
     Dosage: 5 MG/KG Q (EVERY) 0, 2, 6 WEEKS , THEN EVERY 8 WEEKS
     Route: 042
     Dates: start: 20190115, end: 20190115
  10. INFLECTRA [Suspect]
     Active Substance: INFLIXIMAB-DYYB
     Dosage: 5 MG/KG Q (EVERY) 0, 2, 6 WEEKS , THEN EVERY 8 WEEKS
     Route: 042
     Dates: start: 20190920
  11. INFLECTRA [Suspect]
     Active Substance: INFLIXIMAB-DYYB
     Dosage: 5 MG/KG Q (EVERY) 0, 2, 6 WEEKS , THEN EVERY 8 WEEKS
     Route: 042
     Dates: start: 20191115
  12. INFLECTRA [Suspect]
     Active Substance: INFLIXIMAB-DYYB
     Dosage: 400MG
     Route: 042
     Dates: start: 20190531

REACTIONS (6)
  - Mycobacterium tuberculosis complex test positive [Unknown]
  - Inappropriate schedule of product administration [Unknown]
  - Gastric infection [Recovering/Resolving]
  - Off label use [Unknown]
  - Diarrhoea [Unknown]
  - Pyrexia [Unknown]

NARRATIVE: CASE EVENT DATE: 20190405
